FAERS Safety Report 9632019 (Version 1)
Quarter: 2013Q4

REPORT INFORMATION
  Report Type: Spontaneous
  Country: US (occurrence: US)
  Receive Date: 20131018
  Receipt Date: 20131018
  Transmission Date: 20140711
  Serious: Yes (Other)
  Sender: FDA-Public Use
  Company Number: US-ROXANE LABORATORIES, INC.-2013-RO-01689RO

PATIENT
  Age: 66 Year
  Sex: Male

DRUGS (2)
  1. CLOPIDOGREL [Suspect]
     Indication: ANTICOAGULANT THERAPY
     Dates: start: 2010
  2. ASPIRIN [Suspect]
     Indication: ANTICOAGULANT THERAPY
     Dates: start: 2010

REACTIONS (4)
  - Gastrointestinal haemorrhage [Not Recovered/Not Resolved]
  - Iron deficiency anaemia [Unknown]
  - Angina unstable [Unknown]
  - Atrial fibrillation [Unknown]
